FAERS Safety Report 9300293 (Version 1)
Quarter: 2013Q2

REPORT INFORMATION
  Report Type: Spontaneous
  Country: US (occurrence: US)
  Receive Date: 20130521
  Receipt Date: 20130521
  Transmission Date: 20140414
  Serious: Yes (Other)
  Sender: FDA-Public Use
  Company Number: US-JNJFOC-20130506627

PATIENT
  Age: 27 Year
  Sex: Female

DRUGS (5)
  1. INVEGA [Suspect]
     Indication: BIPOLAR I DISORDER
     Route: 048
     Dates: start: 20130304, end: 20130312
  2. ABILIFY [Suspect]
     Indication: BIPOLAR I DISORDER
     Route: 065
     Dates: start: 20130304, end: 20130312
  3. ZOLOFT [Concomitant]
     Indication: PRODUCT USED FOR UNKNOWN INDICATION
     Route: 065
  4. SYNTHROID [Concomitant]
     Indication: PRODUCT USED FOR UNKNOWN INDICATION
     Route: 065
  5. ACYCLOVIR [Concomitant]
     Route: 065

REACTIONS (1)
  - Hypersensitivity [Unknown]
